FAERS Safety Report 9921231 (Version 2)
Quarter: 2014Q1

REPORT INFORMATION
  Report Type: Spontaneous
  Country: JP (occurrence: JP)
  Receive Date: 20140225
  Receipt Date: 20140225
  Transmission Date: 20141002
  Serious: Yes (Disabling, Other)
  Sender: FDA-Public Use
  Company Number: JP-ROCHE-1299537

PATIENT
  Age: 63 Year
  Sex: Male
  Weight: 64 kg

DRUGS (13)
  1. XELODA [Suspect]
     Indication: COLON CANCER METASTATIC
     Route: 048
     Dates: start: 20130124, end: 20130910
  2. XELODA [Suspect]
     Indication: COLON CANCER METASTATIC
     Dosage: DOSAGE IS UNCERTAIN.
     Route: 048
     Dates: start: 20130917, end: 20131001
  3. AVASTIN [Suspect]
     Indication: COLON CANCER METASTATIC
     Route: 041
     Dates: start: 20130124, end: 20130917
  4. ELPLAT [Suspect]
     Indication: COLON CANCER METASTATIC
     Dosage: DOSAGE IS UNCERTAIN.
     Route: 041
     Dates: start: 20130124, end: 20130827
  5. ELPLAT [Suspect]
     Indication: COLON CANCER METASTATIC
     Dosage: DOSAGE IS UNCERTAIN.
     Route: 041
     Dates: start: 20130917, end: 20130917
  6. NESINA [Concomitant]
     Indication: TYPE 2 DIABETES MELLITUS
     Route: 065
     Dates: end: 20131004
  7. AMLODIPINE [Concomitant]
     Indication: HYPERTENSION
     Route: 065
     Dates: end: 20131004
  8. MAINTATE [Concomitant]
     Indication: HYPERTENSION
     Dosage: 0.625 MG 0.5T MORNING
     Route: 065
     Dates: end: 20131004
  9. CRAVIT [Concomitant]
     Indication: CYSTITIS
     Route: 048
     Dates: start: 20130117, end: 20130201
  10. PYDOXAL [Concomitant]
     Indication: NEUROPATHY PERIPHERAL
     Route: 048
     Dates: start: 20130125, end: 20131004
  11. TSUMURA GOSHAJINKIGAN [Concomitant]
     Indication: NEUROPATHY PERIPHERAL
     Route: 048
     Dates: start: 20130125, end: 20131004
  12. EMEND [Concomitant]
     Indication: NAUSEA
     Dosage: CHEMOTHERAPY DAY: 125MG?AFTER CHEMOTHERAPY: 80MG2 DAY.
     Route: 048
     Dates: start: 20130204, end: 20131004
  13. AMARYL [Concomitant]
     Indication: TYPE 2 DIABETES MELLITUS
     Route: 065
     Dates: start: 20130215, end: 20131004

REACTIONS (5)
  - Peripheral sensorimotor neuropathy [Not Recovered/Not Resolved]
  - Pneumonia aspiration [Unknown]
  - Palmar-plantar erythrodysaesthesia syndrome [Unknown]
  - Platelet count decreased [Recovered/Resolved]
  - Multiple system atrophy [Unknown]
